FAERS Safety Report 13024082 (Version 2)
Quarter: 2016Q4

REPORT INFORMATION
  Report Type: Report from Study
  Country: CA (occurrence: CA)
  Receive Date: 20161213
  Receipt Date: 20161227
  Transmission Date: 20170207
  Serious: Yes (Hospitalization, Other)
  Sender: FDA-Public Use
  Company Number: CA-BAYER-2016-218930

PATIENT
  Age: 74 Year
  Sex: Male

DRUGS (9)
  1. BISOPROLOL [Concomitant]
     Active Substance: BISOPROLOL
     Dosage: UNK
  2. ADEMPAS [Suspect]
     Active Substance: RIOCIGUAT
     Indication: PULMONARY HYPERTENSION
     Dosage: 1 MG, TID
     Dates: start: 20161109
  3. DIGOXIN. [Concomitant]
     Active Substance: DIGOXIN
     Dosage: UNK
  4. ADEMPAS [Suspect]
     Active Substance: RIOCIGUAT
     Indication: PULMONARY HYPERTENSION
     Dosage: 2 MG, TID
  5. FLOMAX [Concomitant]
     Active Substance: TAMSULOSIN HYDROCHLORIDE
     Dosage: UNK
  6. LASIX [Concomitant]
     Active Substance: FUROSEMIDE
     Dosage: UNK
  7. LOVENOX [Concomitant]
     Active Substance: ENOXAPARIN SODIUM
     Dosage: UNK
  8. CRESTOR [Concomitant]
     Active Substance: ROSUVASTATIN CALCIUM
     Dosage: UNK
  9. FE [FERROUS GLYCINE SULFATE] [Concomitant]
     Dosage: UNK

REACTIONS (13)
  - Blood pressure systolic decreased [None]
  - Dyspepsia [None]
  - Arrhythmia [None]
  - Blood pressure systolic decreased [None]
  - Heart rate increased [None]
  - Gastrooesophageal reflux disease [None]
  - Atrial flutter [None]
  - Blood pressure decreased [None]
  - Dysphagia [None]
  - Salivary hypersecretion [None]
  - Blood pressure diastolic decreased [Recovered/Resolved]
  - Blood pressure diastolic decreased [None]
  - Heart rate increased [None]

NARRATIVE: CASE EVENT DATE: 201611
